FAERS Safety Report 8079413-5 (Version None)
Quarter: 2012Q1

REPORT INFORMATION
  Report Type: 
  Country: None (occurrence: None)
  Receive Date: 20120128
  Receipt Date: 20110827
  Transmission Date: 20120608
  Serious: No
  Sender: FDA-Public Use
  Company Number: US-ABBOTT-11P-163-0848713-00

PATIENT
  Age: 35 Year
  Sex: Female

DRUGS (1)
  1. HUMIRA [Suspect]
     Indication: DERMATITIS
     Route: 058
     Dates: start: 20110812, end: 20110824

REACTIONS (3)
  - RASH [None]
  - INJECTION SITE PRURITUS [None]
  - RASH PAPULAR [None]
